FAERS Safety Report 4573698-5 (Version None)
Quarter: 2005Q1

REPORT INFORMATION
  Report Type: 
  Country: None (occurrence: None)
  Receive Date: 20050208
  Receipt Date: 20040929
  Transmission Date: 20050727
  Serious: Yes (Other)
  Sender: FDA-Public Use
  Company Number: US-GLAXOSMITHKLINE-A0527781A

PATIENT
  Sex: Female

DRUGS (7)
  1. PAROXETINE HCL [Suspect]
     Indication: DEPRESSION
     Dosage: 40MG PER DAY
     Route: 048
  2. RISPERDAL [Concomitant]
  3. ENALAPRIL MALEATE [Concomitant]
  4. METOPROLOL [Concomitant]
  5. BACLOFEN [Concomitant]
  6. CLONIDINE [Concomitant]
  7. PEPCID [Concomitant]

REACTIONS (1)
  - HALLUCINATION [None]
